FAERS Safety Report 19443957 (Version 2)
Quarter: 2021Q2

REPORT INFORMATION
  Report Type: Spontaneous
  Country: US (occurrence: US)
  Receive Date: 20210621
  Receipt Date: 20210630
  Transmission Date: 20210717
  Serious: Yes (Other)
  Sender: FDA-Public Use
  Company Number: US-PFIZER INC-2021693617

PATIENT
  Age: 21 Year
  Sex: Male

DRUGS (5)
  1. CYCLOPHOSPHAMIDE. [Suspect]
     Active Substance: CYCLOPHOSPHAMIDE
     Indication: NEOPLASM MALIGNANT
     Dosage: UNK UNK, CYCLIC (EVERY 2 WEEKS FOR A TOTAL OF 17 CYCLES)
  2. ETOPOSIDE. [Suspect]
     Active Substance: ETOPOSIDE
     Indication: NEOPLASM MALIGNANT
     Dosage: UNK, CYCLIC (EVERY 2 WEEKS FOR A TOTAL OF 17 CYCLES)
  3. DOXORUBICIN HCL [Suspect]
     Active Substance: DOXORUBICIN HYDROCHLORIDE
     Indication: NEOPLASM MALIGNANT
     Dosage: UNK UNK, CYCLIC (EVERY 2 WEEKS FOR A TOTAL OF 17 CYCLES)
  4. VINCRISTINE SULFATE. [Suspect]
     Active Substance: VINCRISTINE SULFATE
     Indication: NEOPLASM MALIGNANT
     Dosage: UNK UNK, CYCLIC (EVERY 2 WEEKS FOR A TOTAL OF 17 CYCLES)
  5. IFOSFAMIDE. [Suspect]
     Active Substance: IFOSFAMIDE
     Indication: NEOPLASM MALIGNANT
     Dosage: UNK UNK, CYCLIC (EVERY 2 WEEKS FOR A TOTAL OF 17 CYCLES)

REACTIONS (3)
  - Neutropenia [Unknown]
  - Nausea [Unknown]
  - Nephropathy toxic [Recovering/Resolving]
